FAERS Safety Report 24339060 (Version 1)
Quarter: 2024Q3

REPORT INFORMATION
  Report Type: Spontaneous
  Country: CA (occurrence: None)
  Receive Date: 20240919
  Receipt Date: 20240919
  Transmission Date: 20241016
  Serious: Yes (Hospitalization, Other)
  Sender: ORION
  Company Number: CA-PFIZER INC-202400257351

PATIENT
  Age: 40 Year

DRUGS (2)
  1. METHOTREXATE [Suspect]
     Active Substance: METHOTREXATE
     Indication: Product used for unknown indication
     Dates: start: 202405, end: 2024
  2. PLAQUENIL [Suspect]
     Active Substance: HYDROXYCHLOROQUINE SULFATE
     Indication: Product used for unknown indication
     Dates: start: 202405, end: 2024

REACTIONS (7)
  - Acute kidney injury [Unknown]
  - Pyrexia [Unknown]
  - Anaemia [Unknown]
  - Inflammation [Unknown]
  - Vasculitis [Unknown]
  - Renal disorder [Unknown]
  - Drug intolerance [Unknown]
